FAERS Safety Report 24047268 (Version 1)
Quarter: 2024Q3

REPORT INFORMATION
  Report Type: Spontaneous
  Country: US (occurrence: None)
  Receive Date: 20240702
  Receipt Date: 20240702
  Transmission Date: 20241016
  Serious: Yes (Hospitalization)
  Sender: Public
  Company Number: None

PATIENT
  Age: 69 Year
  Sex: Female
  Weight: 52.2 kg

DRUGS (1)
  1. EVEROLIMUS [Suspect]
     Active Substance: EVEROLIMUS
     Indication: Carcinoid tumour in the large intestine
     Dosage: 10 MG DAILY ORAL?
     Route: 048
     Dates: start: 20240607, end: 20240630

REACTIONS (5)
  - Dyspnoea [None]
  - Dyspnoea [None]
  - Oxygen saturation decreased [None]
  - Pericardial effusion [None]
  - Therapy cessation [None]

NARRATIVE: CASE EVENT DATE: 20240630
